FAERS Safety Report 8347545-X (Version None)
Quarter: 2012Q2

REPORT INFORMATION
  Report Type: 
  Country: None (occurrence: None)
  Receive Date: 20120509
  Receipt Date: 20120507
  Transmission Date: 20120825
  Serious: No
  Sender: FDA-Public Use
  Company Number: US-TEVA-337049USA

PATIENT
  Sex: Female
  Weight: 59.02 kg

DRUGS (2)
  1. PLAN B ONE-STEP [Suspect]
     Indication: POST COITAL CONTRACEPTION
     Dosage: 1.5 MILLIGRAM;
     Route: 048
     Dates: start: 20120501, end: 20120501
  2. ORTHO EVRA [Suspect]
     Indication: CONTRACEPTION
     Dates: start: 20120429

REACTIONS (4)
  - FATIGUE [None]
  - HEADACHE [None]
  - NAUSEA [None]
  - BACK PAIN [None]
